FAERS Safety Report 25332403 (Version 1)
Quarter: 2025Q2

REPORT INFORMATION
  Report Type: Spontaneous
  Country: ZA (occurrence: ZA)
  Receive Date: 20250519
  Receipt Date: 20250519
  Transmission Date: 20250716
  Serious: Yes (Other)
  Sender: BAYER HEALTHCARE PHARMACEUTICALS INC.
  Company Number: ZA-BAYER-2025A065591

PATIENT
  Age: 54 Year
  Sex: Female

DRUGS (9)
  1. ANGELIQ [Suspect]
     Active Substance: DROSPIRENONE\ESTRADIOL
     Indication: Hormone replacement therapy
     Dosage: 1 DF, QD
     Route: 048
  2. ATORVASTATIN [Concomitant]
     Active Substance: ATORVASTATIN
     Indication: Blood cholesterol
     Dosage: 10 MG, QD
     Route: 048
  3. NEUROBION [Concomitant]
     Active Substance: CYANOCOBALAMIN\PYRIDOXINE\THIAMINE
     Dosage: 1 DF, QD
     Route: 048
  4. DICLOFENAC [Concomitant]
     Active Substance: DICLOFENAC
     Dosage: 100 MG INSERT ONE PER RECTUM DAILY IF NECESSARY
     Route: 054
  5. PICOPREP [Concomitant]
     Active Substance: ANHYDROUS CITRIC ACID\MAGNESIUM OXIDE\SODIUM PICOSULFATE
     Route: 048
  6. BETADINE [Concomitant]
     Active Substance: POVIDONE-IODINE
     Dosage: 100 MG USE DAILY VAGINALLY THREE DAYS
     Route: 067
  7. SAXENDA [Concomitant]
     Active Substance: LIRAGLUTIDE
     Indication: Diabetes mellitus
     Dosage: 6 MG INJECT 0.6MG SUBCUTANE OUSLY ONCE DAILY
     Route: 058
  8. LOPERAMIDE [Concomitant]
     Active Substance: LOPERAMIDE
     Route: 048
  9. BUTYLSCOPOLAMINE BROMIDE [Concomitant]
     Active Substance: BUTYLSCOPOLAMINE BROMIDE
     Route: 048

REACTIONS (1)
  - Hysterectomy [None]
